FAERS Safety Report 7125412-7 (Version None)
Quarter: 2010Q4

REPORT INFORMATION
  Report Type: 
  Country: None (occurrence: None)
  Receive Date: 20101129
  Receipt Date: 20101116
  Transmission Date: 20110411
  Serious: No
  Sender: FDA-Public Use
  Company Number: US-ELI_LILLY_AND_COMPANY-US201011005876

PATIENT
  Age: 61 Year
  Sex: Female

DRUGS (1)
  1. ADCIRCA [Suspect]
     Dosage: 1 D/F, UNK

REACTIONS (1)
  - VISION BLURRED [None]
